FAERS Safety Report 24838178 (Version 1)
Quarter: 2025Q1

REPORT INFORMATION
  Report Type: Spontaneous
  Country: US (occurrence: None)
  Receive Date: 20250112
  Receipt Date: 20250112
  Transmission Date: 20250408
  Serious: Yes (Other)
  Sender: FDA-CTU
  Company Number: None

PATIENT
  Age: 19 Year
  Sex: Female
  Weight: 58.5 kg

DRUGS (3)
  1. VTAMA [Suspect]
     Active Substance: TAPINAROF
     Indication: Psoriasis
     Dosage: DAILY TRANSDERMAL
     Route: 062
     Dates: start: 20250109, end: 20250112
  2. bethanethasone dipropionate cream 0.05% [Concomitant]
  3. BENADRYL [Concomitant]
     Active Substance: DIPHENHYDRAMINE HYDROCHLORIDE

REACTIONS (1)
  - Eye swelling [None]

NARRATIVE: CASE EVENT DATE: 20250112
